FAERS Safety Report 5159144-1 (Version None)
Quarter: 2006Q4

REPORT INFORMATION
  Report Type: 
  Country: None (occurrence: None)
  Receive Date: 20061117
  Receipt Date: 20061115
  Transmission Date: 20070319
  Serious: Yes (Death, Hospitalization)
  Sender: FDA-Public Use
  Company Number: OSCN-NO-0611S-0328

PATIENT
  Age: 55 Year
  Sex: Female

DRUGS (16)
  1. OMNISCAN [Suspect]
     Indication: DRUG USE FOR UNKNOWN INDICATION
     Dosage: SEE IMAGE
     Route: 042
     Dates: start: 20051116, end: 20051116
  2. OMNISCAN [Suspect]
     Indication: DRUG USE FOR UNKNOWN INDICATION
     Dosage: SEE IMAGE
     Route: 042
     Dates: start: 20060220, end: 20060220
  3. ANASTROZOLE [Concomitant]
  4. CLONAZEPAM [Concomitant]
  5. EPREX [Concomitant]
  6. FOLIC ACID [Concomitant]
  7. NYSTATIN [Concomitant]
  8. OMEPRAZOLE [Concomitant]
  9. ACETAMINOPHEN [Concomitant]
  10. PREDNISOLONE [Concomitant]
  11. QUININE SULPHATE (QUININE) [Concomitant]
  12. SEVELAMER HYDROCHLORIDE (RENAGEL) [Concomitant]
  13. TRAMADOL HCL [Concomitant]
  14. ABBOKINASE [Concomitant]
  15. SACCHARATED IRON OXIDE (VENOFER) [Concomitant]
  16. WARFARIN SODIUM [Concomitant]

REACTIONS (1)
  - NEPHROGENIC FIBROSING DERMOPATHY [None]
